FAERS Safety Report 11072332 (Version 5)
Quarter: 2015Q2

REPORT INFORMATION
  Report Type: Spontaneous
  Country: US (occurrence: US)
  Receive Date: 20150428
  Receipt Date: 20150605
  Transmission Date: 20150821
  Serious: Yes (Death, Hospitalization, Other)
  Sender: FDA-Public Use
  Company Number: US-MERCK-1504USA022601

PATIENT
  Sex: Male
  Weight: 99.77 kg

DRUGS (3)
  1. BYETTA [Suspect]
     Active Substance: EXENATIDE
     Indication: TYPE 2 DIABETES MELLITUS
     Dosage: 5 MICROGRAM, BID
     Route: 058
     Dates: start: 20100915, end: 201103
  2. ZETIA [Concomitant]
     Active Substance: EZETIMIBE
     Indication: HYPERCHOLESTEROLAEMIA
     Dosage: 10 MG, QD
     Route: 048
     Dates: start: 20100616
  3. JANUVIA [Suspect]
     Active Substance: SITAGLIPTIN PHOSPHATE
     Indication: TYPE 2 DIABETES MELLITUS
     Dosage: 100 MG, QD
     Route: 048
     Dates: start: 20100616, end: 201009

REACTIONS (33)
  - Cryptogenic cirrhosis [Fatal]
  - Chronic kidney disease [Not Recovered/Not Resolved]
  - Anaemia of chronic disease [Not Recovered/Not Resolved]
  - Deep vein thrombosis [Unknown]
  - Limb injury [Unknown]
  - Intervertebral disc degeneration [Unknown]
  - Blood creatinine increased [Unknown]
  - Pulmonary embolism [Unknown]
  - Renal artery stent placement [Unknown]
  - Ascites [Unknown]
  - Cerumen impaction [Unknown]
  - Head injury [Unknown]
  - Non-alcoholic steatohepatitis [Unknown]
  - Gastrointestinal oedema [Unknown]
  - Hyponatraemia [Not Recovered/Not Resolved]
  - Ascites [Unknown]
  - Helicobacter infection [Unknown]
  - Atrial fibrillation [Not Recovered/Not Resolved]
  - Constipation [Not Recovered/Not Resolved]
  - Chronic hepatic failure [Fatal]
  - Rectal ulcer haemorrhage [Unknown]
  - Varices oesophageal [Unknown]
  - Epistaxis [Unknown]
  - Pancreatic carcinoma metastatic [Unknown]
  - Gallbladder disorder [Unknown]
  - Pain in extremity [Unknown]
  - Mesenteric vein thrombosis [Unknown]
  - Acute kidney injury [Unknown]
  - Hypertriglyceridaemia [Unknown]
  - Calcinosis [Unknown]
  - Gastrointestinal ulcer haemorrhage [Unknown]
  - Neck pain [Unknown]
  - Vena cava filter insertion [Unknown]

NARRATIVE: CASE EVENT DATE: 201009
